FAERS Safety Report 5992971-7 (Version None)
Quarter: 2008Q4

REPORT INFORMATION
  Report Type: 
  Country: None (occurrence: None)
  Receive Date: 20081210
  Receipt Date: 20081124
  Transmission Date: 20090506
  Serious: Yes (Death)
  Sender: FDA-Public Use
  Company Number: 08-228

PATIENT
  Age: 28 Year
  Sex: Female

DRUGS (1)
  1. FAZACLO ODT [Suspect]
     Dosage: 75 MG QHS PO
     Route: 048
     Dates: start: 20070606, end: 20081001

REACTIONS (1)
  - ACCIDENTAL OVERDOSE [None]
